FAERS Safety Report 7147338-5 (Version None)
Quarter: 2010Q4

REPORT INFORMATION
  Report Type: 
  Country: None (occurrence: None)
  Receive Date: 20101209
  Receipt Date: 20080611
  Transmission Date: 20110411
  Serious: Yes (Death)
  Sender: FDA-Public Use
  Company Number: US-ACTELION-A-US2007-17175

PATIENT

DRUGS (12)
  1. ILOPROST INHALATION SOLUTION 5UG US [Suspect]
     Indication: PULMONARY ARTERIAL HYPERTENSION
     Dosage: 5 UG, 6 X DAY
     Route: 055
     Dates: start: 20070412, end: 20070630
  2. ILOPROST INHALATION SOLUTION 5UG US [Suspect]
     Dosage: 2.5 UG, SINGLE
     Route: 055
     Dates: start: 20070412, end: 20070412
  3. TRACLEER [Concomitant]
     Indication: PULMONARY ARTERIAL HYPERTENSION
     Dosage: 125 MG, BID
     Route: 048
     Dates: start: 20070423
  4. ZAROXOLYN [Concomitant]
  5. POTASSIUM CHLORIDE [Concomitant]
  6. LASIX [Concomitant]
  7. OXYGEN [Concomitant]
  8. SYNTHROID [Concomitant]
  9. ASCORBIC ACID [Concomitant]
  10. MSM [Concomitant]
  11. M.V.I. [Concomitant]
  12. CALCIUM [Concomitant]

REACTIONS (1)
  - DEATH [None]
